FAERS Safety Report 4498358-0 (Version None)
Quarter: 2004Q4

REPORT INFORMATION
  Report Type: 
  Country: None (occurrence: None)
  Receive Date: 20041105
  Receipt Date: 20041027
  Transmission Date: 20050328
  Serious: Yes (Death)
  Sender: FDA-Public Use
  Company Number: 2004-118200-NL

PATIENT
  Age: 48 Year
  Sex: Male

DRUGS (2)
  1. MIRTAZAPINE [Suspect]
     Indication: DEPRESSION
     Dosage: 15 MG/30 MG/45 MG
     Dates: start: 20040127, end: 20040205
  2. MIRTAZAPINE [Suspect]
     Indication: DEPRESSION
     Dosage: 15 MG/30 MG/45 MG
     Dates: start: 20040302

REACTIONS (5)
  - ANXIETY [None]
  - COMPLETED SUICIDE [None]
  - DISORIENTATION [None]
  - DISTURBANCE IN ATTENTION [None]
  - SELF ESTEEM DECREASED [None]
